FAERS Safety Report 12857970 (Version 2)
Quarter: 2019Q1

REPORT INFORMATION
  Report Type: Report from Study
  Country: US (occurrence: US)
  Receive Date: 20161018
  Receipt Date: 20190306
  Transmission Date: 20190417
  Serious: Yes (Other)
  Sender: FDA-Public Use
  Company Number: US-SA-2016SA155506

PATIENT
  Age: 39 Year
  Sex: Female
  Weight: 77.2 kg

DRUGS (9)
  1. ALEMTUZUMAB [Suspect]
     Active Substance: ALEMTUZUMAB
     Indication: MULTIPLE SCLEROSIS
     Dosage: 12 MG,UNK
     Route: 041
     Dates: start: 20160411, end: 20160415
  2. SYNTHROID [Concomitant]
     Active Substance: LEVOTHYROXINE SODIUM
     Dosage: UNK UNK,QOD
     Route: 048
  3. TECFIDERA [Concomitant]
     Active Substance: DIMETHYL FUMARATE
     Dosage: UNK
  4. SYNTHROID [Concomitant]
     Active Substance: LEVOTHYROXINE SODIUM
     Dosage: UNK UNK,QD
     Dates: start: 20170120
  5. ACICLOVIR [Concomitant]
     Active Substance: ACYCLOVIR
     Dosage: 400 MG,BID
     Route: 048
  6. CYANOCOBALAMIN. [Concomitant]
     Active Substance: CYANOCOBALAMIN
     Dosage: 1000 DF,UNK
  7. REBIF [Concomitant]
     Active Substance: INTERFERON BETA-1A
     Dosage: UNK
  8. SYNTHROID [Concomitant]
     Active Substance: LEVOTHYROXINE SODIUM
     Dosage: 150 UG,UNK
  9. GABAPENTIN. [Concomitant]
     Active Substance: GABAPENTIN
     Dosage: 600 MG,UNK
     Route: 048

REACTIONS (16)
  - Urine leukocyte esterase positive [Not Recovered/Not Resolved]
  - Body temperature increased [Unknown]
  - Urinary casts [Not Recovered/Not Resolved]
  - Mobility decreased [Recovered/Resolved]
  - Feeling abnormal [Unknown]
  - Urinary sediment present [Unknown]
  - CD4 lymphocytes decreased [Not Recovered/Not Resolved]
  - Urine abnormality [Unknown]
  - Infusion related reaction [Unknown]
  - Thyroid disorder [Recovered/Resolved]
  - Bradycardia [Not Recovered/Not Resolved]
  - Malaise [Not Recovered/Not Resolved]
  - Pyrexia [Unknown]
  - Blood creatinine increased [Unknown]
  - Protein urine present [Not Recovered/Not Resolved]
  - Blood thyroid stimulating hormone increased [Unknown]

NARRATIVE: CASE EVENT DATE: 2016
